FAERS Safety Report 15233192 (Version 1)
Quarter: 2018Q3

REPORT INFORMATION
  Report Type: Spontaneous
  Country: BE (occurrence: BE)
  Receive Date: 20180802
  Receipt Date: 20180802
  Transmission Date: 20181010
  Serious: Yes (Hospitalization)
  Sender: FDA-Public Use
  Company Number: BE-MYLANLABS-2018M1057665

PATIENT
  Age: 65 Year
  Sex: Female

DRUGS (3)
  1. AZITHROMYCINE [Concomitant]
     Active Substance: AZITHROMYCIN DIHYDRATE
     Indication: ORGANISING PNEUMONIA
     Dosage: FOR 3 MONTHS
     Route: 065
     Dates: start: 201403
  2. PREDNISONE. [Suspect]
     Active Substance: PREDNISONE
     Indication: ORGANISING PNEUMONIA
     Dosage: 0.5 MG/KG/DAY FOR 3 WEEKS FOLLOWED BY GRADUAL TAPERING OF THE DOSE, TOTAL DURATION OF PREDNISONE ...
     Route: 065
     Dates: start: 201310
  3. PREDNISONE. [Suspect]
     Active Substance: PREDNISONE
     Dosage: WITH SLOW TAPERING OF THE STEROIDS
     Route: 065
     Dates: start: 201403

REACTIONS (8)
  - Brain abscess [Recovering/Resolving]
  - Muscular weakness [Recovering/Resolving]
  - Staphylococcal infection [Recovered/Resolved]
  - Sensory loss [Recovering/Resolving]
  - Somnolence [Recovering/Resolving]
  - Aspergillus infection [Recovering/Resolving]
  - Fungal infection [Recovering/Resolving]
  - Hydrocephalus [Recovered/Resolved]

NARRATIVE: CASE EVENT DATE: 20131107
